FAERS Safety Report 17148929 (Version 2)
Quarter: 2020Q2

REPORT INFORMATION
  Report Type: Spontaneous
  Country: CA (occurrence: CA)
  Receive Date: 20191213
  Receipt Date: 20200623
  Transmission Date: 20200713
  Serious: Yes (Other)
  Sender: FDA-Public Use
  Company Number: CA-ROCHE-2492084

PATIENT
  Age: 7 Year
  Sex: Female

DRUGS (3)
  1. SOMATROPIN. [Suspect]
     Active Substance: SOMATROPIN
     Route: 058
  2. SOMATROPIN. [Suspect]
     Active Substance: SOMATROPIN
     Route: 058
  3. SOMATROPIN. [Suspect]
     Active Substance: SOMATROPIN
     Indication: GROWTH HORMONE DEFICIENCY
     Route: 058

REACTIONS (2)
  - Thrombosis [Recovered/Resolved]
  - Wrong schedule [Unknown]
